FAERS Safety Report 4357835-3 (Version None)
Quarter: 2004Q2

REPORT INFORMATION
  Report Type: 
  Country: None (occurrence: None)
  Receive Date: 20040512
  Receipt Date: 20040427
  Transmission Date: 20050107
  Serious: Yes (Hospitalization)
  Sender: FDA-Public Use
  Company Number: US-JNJFOC-20040405951

PATIENT
  Age: 76 Year
  Sex: Female

DRUGS (9)
  1. INFLIXIMAB (INFLIXIMAB, RECOMBINANT) LYOPHILIZED POWDER [Suspect]
     Indication: RHEUMATOID ARTHRITIS
     Route: 042
     Dates: start: 20020201, end: 20031013
  2. ZESTORIC (PRINZIDE) [Concomitant]
  3. ALBUTEROL (SALBUTAMOL) AEROSOLS [Concomitant]
  4. IPRATROPIUM (IPRATROPIUM) AEROSOLS [Concomitant]
  5. ALPRAZOLAM [Concomitant]
  6. ALLOPURINOL [Concomitant]
  7. LASIX [Concomitant]
  8. MICRO-K (POTASSIUM CHLORIDE) [Concomitant]
  9. INSULIN [Concomitant]

REACTIONS (3)
  - CORONARY ARTERY DISEASE [None]
  - CYST [None]
  - STAPHYLOCOCCAL INFECTION [None]
